FAERS Safety Report 6847614-7 (Version None)
Quarter: 2010Q3

REPORT INFORMATION
  Report Type: 
  Country: None (occurrence: None)
  Receive Date: 20100714
  Receipt Date: 20100630
  Transmission Date: 20110219
  Serious: Yes (Other)
  Sender: FDA-Public Use
  Company Number: 7008071

PATIENT
  Age: 51 Year
  Sex: Female

DRUGS (1)
  1. REBIF [Suspect]
     Indication: MULTIPLE SCLEROSIS
     Dosage: 44 MCG, 3 IN 1 WK, SUBCUTANEOUS
     Route: 058
     Dates: start: 20100211

REACTIONS (5)
  - DIZZINESS [None]
  - INJECTION SITE PAIN [None]
  - MENORRHAGIA [None]
  - MULTIPLE SCLEROSIS RELAPSE [None]
  - SENSORY DISTURBANCE [None]
